FAERS Safety Report 4553094-7 (Version None)
Quarter: 2005Q1

REPORT INFORMATION
  Report Type: 
  Country: None (occurrence: None)
  Receive Date: 20050112
  Receipt Date: 20050112
  Transmission Date: 20050727
  Serious: Yes (Disabling)
  Sender: FDA-Public Use
  Company Number: None

PATIENT
  Sex: Female
  Weight: 76.2043 kg

DRUGS (1)
  1. SINEMET [Suspect]
     Indication: PARKINSON'S DISEASE
     Dosage: 25/100 TAB 1 TABLET BY MOUTH 4 TIMES DAILY
     Route: 048
     Dates: start: 20041229

REACTIONS (2)
  - DRUG INEFFECTIVE [None]
  - PARKINSON'S DISEASE [None]
